FAERS Safety Report 25377562 (Version 1)
Quarter: 2025Q2

REPORT INFORMATION
  Report Type: Report from Study
  Country: US (occurrence: US)
  Receive Date: 20250530
  Receipt Date: 20250530
  Transmission Date: 20250717
  Serious: Yes (Other)
  Sender: ROCHE
  Company Number: US-ROCHE-10000292403

PATIENT
  Sex: Female

DRUGS (26)
  1. AVASTIN [Suspect]
     Active Substance: BEVACIZUMAB
     Indication: Colon cancer
     Route: 065
  2. XELODA [Suspect]
     Active Substance: CAPECITABINE
     Indication: Product used for unknown indication
     Route: 065
  3. ALBUTEROL SULFATE [Concomitant]
     Active Substance: ALBUTEROL SULFATE
  4. BUPROPION [Concomitant]
     Active Substance: BUPROPION
  5. ZYRTEC [Concomitant]
     Active Substance: CETIRIZINE HYDROCHLORIDE
  6. CLEOCIN T [Concomitant]
     Active Substance: CLINDAMYCIN PHOSPHATE
  7. TEMOVATE [Concomitant]
     Active Substance: CLOBETASOL PROPIONATE
  8. PRISTIQ EXTENDED-RELEASE [Concomitant]
     Active Substance: DESVENLAFAXINE SUCCINATE
  9. COLACE [Concomitant]
     Active Substance: DOCUSATE SODIUM
  10. NEURONTIN [Concomitant]
     Active Substance: GABAPENTIN
  11. GARAMYCIN [Concomitant]
     Active Substance: GENTAMICIN SULFATE
  12. ATARAX [Concomitant]
     Active Substance: HYDROXYZINE HYDROCHLORIDE
  13. NIZORAL [Concomitant]
     Active Substance: KETOCONAZOLE
  14. LIDOCAINE AND PRILOCAINE [Concomitant]
     Active Substance: LIDOCAINE\PRILOCAINE
  15. VYVANSE [Concomitant]
     Active Substance: LISDEXAMFETAMINE DIMESYLATE
  16. COZAAR [Concomitant]
     Active Substance: LOSARTAN POTASSIUM
  17. MAGNESIUM OXIDE [Concomitant]
     Active Substance: MAGNESIUM OXIDE
  18. MUPIROCIN [Concomitant]
     Active Substance: MUPIROCIN
  19. MYCOSTATIN [Concomitant]
     Active Substance: NYSTATIN
  20. OMEPRAZOLE [Concomitant]
     Active Substance: OMEPRAZOLE
  21. ZOFRAN [Concomitant]
     Active Substance: ONDANSETRON HYDROCHLORIDE
  22. PANITUMUMAB [Concomitant]
     Active Substance: PANITUMUMAB
  23. PROCHLORPERAZINE [Concomitant]
     Active Substance: PROCHLORPERAZINE
  24. PROMETHAZINE [Concomitant]
     Active Substance: PROMETHAZINE HYDROCHLORIDE
  25. TRIAMCINOLONE [Concomitant]
     Active Substance: TRIAMCINOLONE
  26. AMBIEN [Concomitant]
     Active Substance: ZOLPIDEM TARTRATE

REACTIONS (25)
  - Abdominal pain lower [Unknown]
  - Anxiety [Unknown]
  - Asthma [Unknown]
  - Gastrooesophageal reflux disease [Unknown]
  - Hypertension [Unknown]
  - Pneumonia [Unknown]
  - Obesity [Unknown]
  - Human papilloma virus test positive [Unknown]
  - Joint stiffness [Unknown]
  - Ligament rupture [Unknown]
  - Meniscus injury [Unknown]
  - Joint effusion [Unknown]
  - Rhinitis allergic [Unknown]
  - Hypertension [Unknown]
  - Arthralgia [Unknown]
  - Attention deficit hyperactivity disorder [Unknown]
  - Blood pressure increased [Unknown]
  - Drug eruption [Unknown]
  - Palmar-plantar erythrodysaesthesia syndrome [Unknown]
  - Blood lactate dehydrogenase increased [Unknown]
  - Blood alkaline phosphatase increased [Unknown]
  - Aspartate aminotransferase increased [Unknown]
  - Albumin globulin ratio decreased [Unknown]
  - Blood creatinine increased [Unknown]
  - Liver function test abnormal [Unknown]
